FAERS Safety Report 8935673 (Version 1)
Quarter: 2012Q4

REPORT INFORMATION
  Report Type: 
  Country: US (occurrence: US)
  Receive Date: 20121130
  Receipt Date: 20121130
  Transmission Date: 20130627
  Serious: Yes (Congenital Anomaly, Other)
  Sender: FDA-Public Use
  Company Number: US-PFIZER INC-2012297646

PATIENT
  Sex: Male
  Weight: 3.9 kg

DRUGS (3)
  1. ZOLOFT [Suspect]
     Indication: PANIC DISORDER
     Dosage: 50 mg, 1x/day
     Route: 064
     Dates: start: 19990714, end: 20020926
  2. ZOLOFT [Suspect]
     Dosage: 100 mg, 1x/day
     Route: 064
     Dates: start: 200209
  3. PRENATAL VITAMINS [Concomitant]
     Dosage: UNK
     Route: 064
     Dates: start: 20000404

REACTIONS (11)
  - Maternal exposure timing unspecified [Unknown]
  - Tricuspid valve disease [Unknown]
  - Patent ductus arteriosus [Unknown]
  - Ophthalmia neonatorum [Unknown]
  - Congenital lacrimal passage anomaly [Unknown]
  - Tricuspid valve incompetence [Unknown]
  - Hydrocele [Unknown]
  - Atrial septal defect [Unknown]
  - Congenital umbilical hernia [Unknown]
  - Atrial septal defect [Unknown]
  - Ventricular hypertrophy [Unknown]
